FAERS Safety Report 16249418 (Version 2)
Quarter: 2019Q2

REPORT INFORMATION
  Report Type: Report from Study
  Country: CA (occurrence: CA)
  Receive Date: 20190429
  Receipt Date: 20190503
  Transmission Date: 20190711
  Serious: Yes (Life-Threatening, Hospitalization, Disabling, Other)
  Sender: FDA-Public Use
  Company Number: CA-SA-2017SA006578

PATIENT
  Age: 47 Year
  Sex: Female

DRUGS (78)
  1. SERTRALINE [Concomitant]
     Active Substance: SERTRALINE HYDROCHLORIDE
     Dosage: 150 MG, QD
     Route: 048
     Dates: start: 20151001
  2. SOLU-MEDROL [Concomitant]
     Active Substance: METHYLPREDNISOLONE SODIUM SUCCINATE
     Indication: PROPHYLAXIS
     Dosage: 1 G, UNK
     Route: 042
     Dates: start: 20160822, end: 20160824
  3. PIPTAZONE [Concomitant]
     Active Substance: PIPERACILLIN SODIUM\TAZOBACTAM SODIUM
     Dosage: 3.375
     Route: 042
  4. DOMPERIDONE [Concomitant]
     Active Substance: DOMPERIDONE
     Dosage: 40 MG, UNK
     Route: 048
     Dates: start: 20170315, end: 20171011
  5. HALDOL [Concomitant]
     Active Substance: HALOPERIDOL
     Indication: PROPHYLAXIS
     Dosage: 2 MG, QD
     Route: 048
     Dates: start: 20180924, end: 20180928
  6. HYDROMORPHONE [Concomitant]
     Active Substance: HYDROMORPHONE
  7. PANCRELIPASE. [Concomitant]
     Active Substance: PANCRELIPASE
     Indication: PROPHYLAXIS
     Dosage: 2 MG, QD
     Route: 058
     Dates: start: 20181116
  8. ALEMTUZUMAB [Suspect]
     Active Substance: ALEMTUZUMAB
     Indication: MULTIPLE SCLEROSIS RELAPSE
     Dosage: 12 MG,QD
     Route: 041
     Dates: start: 20160822, end: 20160824
  9. TRAMADOL. [Concomitant]
     Active Substance: TRAMADOL
     Dosage: 30 MG, UNK
     Route: 048
     Dates: start: 20160606
  10. IVIGLOB EX [Concomitant]
     Active Substance: HUMAN IMMUNOGLOBULIN G
     Dosage: 500 MG/KG, QW
  11. LANSOPRAZOLE. [Concomitant]
     Active Substance: LANSOPRAZOLE
     Dosage: 30 MG, QD, VIA FEEDING TUBE
     Route: 050
     Dates: start: 20181015
  12. TRAMACET [Concomitant]
     Active Substance: ACETAMINOPHEN\TRAMADOL
     Dosage: 2 DF, UNK
     Route: 048
     Dates: start: 20160404
  13. METOCLOPRAMIDE. [Concomitant]
     Active Substance: METOCLOPRAMIDE
     Dosage: 20 MG, QD
     Route: 042
     Dates: start: 20180707, end: 20180708
  14. IMODIUM [Concomitant]
     Active Substance: LOPERAMIDE HYDROCHLORIDE
     Dosage: UNK, PRN
  15. MIDAZOLAM [Concomitant]
     Active Substance: MIDAZOLAM HYDROCHLORIDE
     Indication: PROPHYLAXIS
     Dosage: UNK
     Route: 042
     Dates: start: 20181003, end: 20181003
  16. CYCLOPHOSPHAMIDE. [Concomitant]
     Active Substance: CYCLOPHOSPHAMIDE
     Indication: MULTIPLE SCLEROSIS
     Dosage: 3560 MG, QD
     Route: 042
     Dates: start: 20180905, end: 20180908
  17. ALEMTUZUMAB [Suspect]
     Active Substance: ALEMTUZUMAB
     Dosage: 12 MG, QD
     Route: 041
     Dates: start: 20150720, end: 20150724
  18. CLONAZEPAM. [Concomitant]
     Active Substance: CLONAZEPAM
     Indication: MULTIPLE SCLEROSIS
     Dosage: 0.5 MG, UNK
     Route: 048
     Dates: start: 20080625, end: 20180810
  19. PRIMIDONE. [Concomitant]
     Active Substance: PRIMIDONE
     Dosage: 125 MG, UNK
     Route: 048
     Dates: start: 20151202
  20. ACYCLOVIR [ACICLOVIR] [Concomitant]
     Active Substance: ACYCLOVIR
     Dosage: 1600 MG
     Route: 048
     Dates: start: 20171130
  21. ACYCLOVIR [ACICLOVIR] [Concomitant]
     Active Substance: ACYCLOVIR
     Dosage: 400 UNK, Q12H
     Route: 048
     Dates: start: 20171130
  22. ESTRACE [Concomitant]
     Active Substance: ESTRADIOL
     Indication: PROPHYLAXIS
     Dosage: 1 MG, QD
     Route: 048
     Dates: start: 20180411, end: 20181121
  23. PROCHLORPERAZINE. [Concomitant]
     Active Substance: PROCHLORPERAZINE
     Dosage: 10 MG, QD
     Route: 048
     Dates: start: 20180707, end: 20180708
  24. DILAUDID [Concomitant]
     Active Substance: HYDROMORPHONE HYDROCHLORIDE
     Dosage: 1 G, QD
     Route: 042
     Dates: start: 20180918, end: 20180918
  25. FENTANYL. [Concomitant]
     Active Substance: FENTANYL
     Indication: PROPHYLAXIS
     Dosage: 100 UG, QD
     Route: 042
     Dates: start: 20181003, end: 20181003
  26. FOLIC ACID. [Concomitant]
     Active Substance: FOLIC ACID
     Indication: PROPHYLAXIS
     Dosage: 5 MG, QD
     Route: 048
     Dates: start: 20181102
  27. DEXAMETHASONE. [Concomitant]
     Active Substance: DEXAMETHASONE
     Indication: PROPHYLAXIS
     Dosage: 4 MG, QD
     Route: 048
     Dates: start: 20180831, end: 20180911
  28. ACETAMINOPHEN. [Concomitant]
     Active Substance: ACETAMINOPHEN
     Indication: PREMEDICATION
     Dosage: 650 MG, PRN
     Route: 048
     Dates: start: 20160822
  29. NADOLOL. [Concomitant]
     Active Substance: NADOLOL
     Dosage: 40 MG, UNK
     Route: 065
     Dates: start: 20160908, end: 20180410
  30. NADOLOL. [Concomitant]
     Active Substance: NADOLOL
     Dosage: 20 MG, FREQUENCY- QHS
  31. ZOFRAN [Concomitant]
     Active Substance: ONDANSETRON HYDROCHLORIDE
     Dosage: 8 MG, Q8H
     Route: 048
  32. METOCLOPRAMIDE. [Concomitant]
     Active Substance: METOCLOPRAMIDE
     Indication: PROPHYLAXIS
     Dosage: 20 MG, QD
     Route: 042
     Dates: start: 20180831, end: 20180914
  33. ZOPICLONE [Concomitant]
     Active Substance: ZOPICLONE
     Indication: PROPHYLAXIS
     Dosage: 5 MG, QD
     Route: 048
     Dates: start: 20181103
  34. DIPHENHYDRAMINE. [Concomitant]
     Active Substance: DIPHENHYDRAMINE
     Dosage: 12.5 MG, QD
     Route: 042
     Dates: start: 20180831, end: 20180918
  35. MESNA. [Concomitant]
     Active Substance: MESNA
     Indication: PROPHYLAXIS
     Dosage: 9310 MG, QD
     Route: 042
     Dates: start: 20180905, end: 20180908
  36. OXCARBAZEPINE. [Concomitant]
     Active Substance: OXCARBAZEPINE
     Dosage: 125 MG, QD
     Route: 048
     Dates: start: 20180905, end: 20180905
  37. URSODIOL. [Concomitant]
     Active Substance: URSODIOL
     Dosage: 1000 MG, QD
     Route: 048
     Dates: start: 20180831
  38. IVIGLOB EX [Concomitant]
     Active Substance: HUMAN IMMUNOGLOBULIN G
     Dosage: 500 MG/KG, QD
     Route: 050
     Dates: start: 20180917
  39. MAXERAN [Concomitant]
     Active Substance: METOCLOPRAMIDE HYDROCHLORIDE
     Indication: PROPHYLAXIS
     Dosage: 20 MG, Q4H
     Route: 042
     Dates: start: 20181121
  40. LANSOPRAZOLE. [Concomitant]
     Active Substance: LANSOPRAZOLE
     Indication: PROPHYLAXIS
     Dosage: 30 MG, QD
     Route: 048
     Dates: start: 20180831
  41. POTASSIUM CHLORIDE. [Concomitant]
     Active Substance: POTASSIUM CHLORIDE
     Indication: PROPHYLAXIS
     Dosage: 40 MG, QD
     Route: 048
     Dates: start: 20181017
  42. SEPTRA [Concomitant]
     Active Substance: SULFAMETHOXAZOLE\TRIMETHOPRIM
     Indication: PROPHYLAXIS
     Dosage: 1 TAB
     Route: 048
     Dates: start: 20181016
  43. ONDANSETRON [Concomitant]
     Active Substance: ONDANSETRON
     Indication: PROPHYLAXIS
     Dosage: 8 MG, QD
     Route: 048
     Dates: start: 20180831, end: 20180911
  44. OXCARBAZEPINE. [Concomitant]
     Active Substance: OXCARBAZEPINE
     Dosage: 1800 MG, UNK
     Route: 048
     Dates: start: 20170524, end: 20171011
  45. LASIX [Concomitant]
     Active Substance: FUROSEMIDE
     Dosage: 40 MG, BID
     Route: 042
     Dates: start: 20180916
  46. URSODIOL. [Concomitant]
     Active Substance: URSODIOL
     Indication: PROPHYLAXIS
     Dosage: 250 MG, QD
     Route: 048
     Dates: start: 20180831
  47. PROCHLORPERAZINE. [Concomitant]
     Active Substance: PROCHLORPERAZINE
     Dosage: 30 MG, QD
     Route: 048
     Dates: start: 20180717
  48. CODEINE [Concomitant]
     Active Substance: CODEINE
     Dosage: DOSE- 30-60, Q4H
  49. ENOXAPARIN [Concomitant]
     Active Substance: ENOXAPARIN
     Indication: PROPHYLAXIS
     Dosage: 40 MG, QD
     Route: 058
     Dates: start: 20181015
  50. DIPHENHYDRAMINE. [Concomitant]
     Active Substance: DIPHENHYDRAMINE
     Indication: PREMEDICATION
     Dosage: 50 MG, PRN
     Route: 048
     Dates: start: 20160822
  51. ONDANSETRON [Concomitant]
     Active Substance: ONDANSETRON
     Dosage: 8 MG
     Route: 048
     Dates: start: 20180707, end: 20180708
  52. FILGRASTIM [Concomitant]
     Active Substance: FILGRASTIM
     Indication: PROPHYLAXIS
     Dosage: 40 MG, QD
     Route: 048
     Dates: start: 20180717, end: 20180720
  53. COLACE [Concomitant]
     Active Substance: DOCUSATE SODIUM
     Dosage: UNK UNK, UNK
     Route: 048
     Dates: start: 20150804
  54. OXCARBAZEPINE. [Concomitant]
     Active Substance: OXCARBAZEPINE
     Indication: PROPHYLAXIS
     Dosage: 600 MG, UNK
     Route: 048
     Dates: start: 20160411, end: 20170323
  55. OXCARBAZEPINE. [Concomitant]
     Active Substance: OXCARBAZEPINE
     Dosage: 125 MG, QD
     Route: 048
     Dates: start: 20180707, end: 20180708
  56. ESTROGEN [Concomitant]
     Active Substance: ESTROGENS
     Indication: PROPHYLAXIS
     Dosage: UNK UNK, UNK
     Route: 065
     Dates: start: 20160419, end: 20180410
  57. PERINDOPRIL [Concomitant]
     Active Substance: PERINDOPRIL
     Dosage: 2 MG, HS
     Route: 048
  58. DILTIAZEM [DILTIAZEM HYDROCHLORIDE] [Concomitant]
     Active Substance: DILTIAZEM HYDROCHLORIDE
     Dosage: 60 MG, QID
  59. FLUCONAZOLE. [Concomitant]
     Active Substance: FLUCONAZOLE
     Dosage: 400 QD
     Route: 048
     Dates: start: 20180717, end: 20180720
  60. DILAUDID [Concomitant]
     Active Substance: HYDROMORPHONE HYDROCHLORIDE
     Indication: PROPHYLAXIS
     Dosage: 1 MG, Q2H (SC.IV)
     Route: 048
     Dates: start: 20180717, end: 20180720
  61. DIPHENHYDRAMINE. [Concomitant]
     Active Substance: DIPHENHYDRAMINE
     Dosage: 125 MG
     Route: 048
     Dates: start: 20180707, end: 20180708
  62. BUSULFAN. [Concomitant]
     Active Substance: BUSULFAN
     Indication: MULTIPLE SCLEROSIS
     Dosage: 171 MG, QD
     Route: 042
     Dates: start: 20180831, end: 20180903
  63. MIDODRINE [Concomitant]
     Active Substance: MIDODRINE
  64. TRILEPTAL [Concomitant]
     Active Substance: OXCARBAZEPINE
     Dosage: 300 MG, UNK
     Route: 048
     Dates: start: 20160411, end: 20161130
  65. OXCARBAZEPINE. [Concomitant]
     Active Substance: OXCARBAZEPINE
     Dosage: 1200 MG, UNK
     Route: 048
     Dates: start: 20161201, end: 20170523
  66. ACYCLOVIR [ACICLOVIR] [Concomitant]
     Active Substance: ACYCLOVIR
     Indication: PROPHYLAXIS
     Dosage: 800 MG, UNK
     Route: 048
     Dates: start: 20160407, end: 20171129
  67. FLUCONAZOLE. [Concomitant]
     Active Substance: FLUCONAZOLE
     Indication: PROPHYLAXIS
     Dosage: 400 MG, QD
     Route: 048
     Dates: start: 20180831, end: 20180918
  68. AMITRIPTYLINE [Concomitant]
     Active Substance: AMITRIPTYLINE
     Dosage: 25 MG- 50MG, FREQUENCY- QHS
     Route: 048
     Dates: start: 20170524
  69. PROCHLORPERAZINE. [Concomitant]
     Active Substance: PROCHLORPERAZINE
     Indication: PROPHYLAXIS
     Dosage: 10 MG, Q4H
     Route: 065
     Dates: start: 20180831, end: 20180918
  70. METOCLOPRAMIDE. [Concomitant]
     Active Substance: METOCLOPRAMIDE
     Dosage: 10 MG, QD
     Route: 042
     Dates: start: 20180717, end: 20180721
  71. IMOVANE [Concomitant]
     Active Substance: ZOPICLONE
     Indication: PROPHYLAXIS
     Dosage: 3.75 MG, QD
     Route: 048
     Dates: start: 20180831, end: 20180911
  72. PROPOFOL. [Concomitant]
     Active Substance: PROPOFOL
     Indication: PROPHYLAXIS
     Dosage: 140 UG, QD
     Route: 042
     Dates: start: 20181003, end: 20181003
  73. CEFTRIAXONE. [Concomitant]
     Active Substance: CEFTRIAXONE
     Indication: PROPHYLAXIS
     Dosage: 1 G, QD
     Route: 042
     Dates: start: 20180907, end: 20181116
  74. DEXAMETHASONE. [Concomitant]
     Active Substance: DEXAMETHASONE
     Dosage: 8 MG
     Route: 048
     Dates: start: 20180707, end: 20180708
  75. PHENYLEPHRINE [Concomitant]
     Active Substance: PHENYLEPHRINE\PHENYLEPHRINE HYDROCHLORIDE
     Indication: PROPHYLAXIS
     Dosage: 200 UG, QD
     Route: 042
     Dates: start: 20181003, end: 20181003
  76. CIPRODEX [CIPROFLOXACIN HYDROCHLORIDE] [Concomitant]
  77. LOPERAMIDE [Concomitant]
     Active Substance: LOPERAMIDE
     Indication: PROPHYLAXIS
     Dosage: 2 MG, QD
     Route: 048
     Dates: start: 20180719, end: 20180720
  78. PIPERACILLIN/TAZOBACTAM [Concomitant]
     Active Substance: PIPERACILLIN SODIUM\TAZOBACTAM SODIUM
     Indication: PROPHYLAXIS
     Dosage: 13 G, QD
     Route: 042
     Dates: start: 20180717, end: 20180719

REACTIONS (34)
  - Pericardial effusion [Recovered/Resolved]
  - Gait disturbance [Recovered/Resolved]
  - Headache [Recovered/Resolved]
  - Panic attack [Recovered/Resolved]
  - Multiple sclerosis relapse [Recovered/Resolved]
  - Neutropenia [Recovered/Resolved]
  - Non-cardiac chest pain [Recovered/Resolved]
  - Multiple sclerosis relapse [Recovered/Resolved]
  - Asthenia [Recovered/Resolved]
  - Thrombocytopenia [Recovered/Resolved]
  - Oral mucosal blistering [Recovered/Resolved]
  - Keratopathy [Recovered/Resolved]
  - Respiratory failure [Recovered/Resolved]
  - Oropharyngeal pain [Recovered/Resolved]
  - Restlessness [Recovered/Resolved]
  - Hypertension [Not Recovered/Not Resolved]
  - Dizziness [Recovered/Resolved]
  - Tension headache [Recovered/Resolved]
  - Pharyngeal abscess [Recovered/Resolved]
  - Arthralgia [Recovered/Resolved]
  - Oesophageal spasm [Not Recovered/Not Resolved]
  - Ear haemorrhage [Recovered/Resolved]
  - Diarrhoea [Recovered/Resolved]
  - Gastrointestinal inflammation [Recovered/Resolved]
  - Dysphagia [Recovered/Resolved]
  - Myocardial ischaemia [Recovered/Resolved]
  - Ischaemic stroke [Recovering/Resolving]
  - Flushing [Recovered/Resolved]
  - Pneumonia aspiration [Recovered/Resolved]
  - Trigeminal neuralgia [Recovered/Resolved]
  - Odynophagia [Recovered/Resolved]
  - Fatigue [Recovered/Resolved]
  - Dyspnoea [Recovered/Resolved]
  - Thrombosis [Recovered/Resolved]

NARRATIVE: CASE EVENT DATE: 20160822
